FAERS Safety Report 10033159 (Version 2)
Quarter: 2014Q2

REPORT INFORMATION
  Report Type: Spontaneous
  Country: US (occurrence: US)
  Receive Date: 20140324
  Receipt Date: 20140609
  Transmission Date: 20141212
  Serious: Yes (Death, Other)
  Sender: FDA-Public Use
  Company Number: US-GILEAD-2014-0097652

PATIENT
  Sex: Female
  Weight: 110.2 kg

DRUGS (11)
  1. LETAIRIS [Suspect]
     Indication: PULMONARY HYPERTENSION
     Dosage: 5 MG, QD
     Route: 065
     Dates: start: 20140310
  2. RANEXA [Suspect]
     Indication: PRODUCT USED FOR UNKNOWN INDICATION
     Dosage: 1000 MG, UNK
     Route: 048
  3. IMDUR [Concomitant]
  4. PANTOPRAZOLE [Concomitant]
  5. LISINOPRIL [Concomitant]
  6. HYDROCHLOROTHIAZIDE [Concomitant]
  7. BUDEPRION [Concomitant]
  8. ASA [Concomitant]
  9. LASIX                              /00032601/ [Concomitant]
     Indication: PULMONARY HYPERTENSION
  10. COREG [Concomitant]
  11. METOLAZONE [Concomitant]

REACTIONS (1)
  - Death [Fatal]
